FAERS Safety Report 21875297 (Version 2)
Quarter: 2023Q1

REPORT INFORMATION
  Report Type: Spontaneous
  Country: JP (occurrence: JP)
  Receive Date: 20230117
  Receipt Date: 20230206
  Transmission Date: 20230418
  Serious: No
  Sender: FDA-Public Use
  Company Number: JP-DSJP-DSJ-2023-101200

PATIENT
  Age: 83 Year
  Sex: Male

DRUGS (1)
  1. ENHERTU [Suspect]
     Active Substance: FAM-TRASTUZUMAB DERUXTECAN-NXKI
     Indication: HER2 positive gastric cancer
     Dosage: 4.4 MG/KG, ONCE EVERY 3 WK
     Route: 041

REACTIONS (2)
  - Underdose [Unknown]
  - No adverse event [Unknown]
